FAERS Safety Report 8318366-9 (Version None)
Quarter: 2012Q2

REPORT INFORMATION
  Report Type: 
  Country: None (occurrence: None)
  Receive Date: 20120427
  Receipt Date: 20120412
  Transmission Date: 20120825
  Serious: Yes (Life-Threatening, Hospitalization, Other)
  Sender: FDA-Public Use
  Company Number: JP-ROCHE-750285

PATIENT
  Age: 63 Year
  Sex: Male
  Weight: 52 kg

DRUGS (33)
  1. FOLIAMIN [Concomitant]
     Route: 048
  2. ACTONEL [Concomitant]
     Route: 048
     Dates: start: 20091125, end: 20101120
  3. PROGRAF [Concomitant]
     Route: 048
  4. FELBINAC [Concomitant]
     Dosage: AT THE RIGHT TIME, FORM: TAPE
     Route: 062
  5. METHOTREXATE [Concomitant]
     Route: 048
  6. ACTEMRA [Suspect]
     Route: 041
     Dates: start: 20090812, end: 20090812
  7. PREDNISOLONE [Concomitant]
     Route: 048
     Dates: start: 20091125, end: 20100218
  8. PREDNISOLONE [Concomitant]
     Route: 048
  9. FOSAMAX [Concomitant]
     Dosage: REPORTED AS FOSAMAC
     Route: 048
     Dates: start: 20090902, end: 20091124
  10. CYTOTEC [Concomitant]
     Route: 048
  11. KETOPROFEN [Concomitant]
     Dosage: FORM: TAPE, ONE PIECE
     Route: 062
  12. ACTEMRA [Suspect]
     Route: 041
     Dates: start: 20090708, end: 20090708
  13. ACTEMRA [Suspect]
     Route: 041
     Dates: start: 20090902, end: 20090902
  14. ACTEMRA [Suspect]
     Route: 041
     Dates: start: 20090930, end: 20090930
  15. PREDNISOLONE [Concomitant]
     Route: 048
     Dates: start: 20100709, end: 20100805
  16. BREDININ [Concomitant]
     Route: 048
     Dates: start: 20100611, end: 20100903
  17. KETOPROFEN [Concomitant]
     Dosage: ONE PIECE
     Route: 062
  18. PREDNISOLONE [Concomitant]
     Route: 048
     Dates: start: 20100219, end: 20100610
  19. PREDNISOLONE [Concomitant]
     Route: 048
     Dates: start: 20100611, end: 20100708
  20. METHOTREXATE [Concomitant]
     Route: 048
  21. FAMOTIDINE [Concomitant]
     Dosage: 20210 MG
     Route: 048
  22. ACTEMRA [Suspect]
     Route: 041
     Dates: start: 20091021, end: 20101029
  23. PREDNISOLONE [Concomitant]
     Indication: RHEUMATOID ARTHRITIS
     Route: 048
     Dates: start: 20090501, end: 20091124
  24. PREDNISOLONE [Concomitant]
     Route: 048
     Dates: start: 20100101, end: 20101120
  25. PREDNISOLONE [Concomitant]
     Route: 048
     Dates: start: 20101220, end: 20101223
  26. VOLTAREN [Concomitant]
     Route: 048
  27. FELBINAC [Concomitant]
     Dosage: AT THE RIGHT TIME, FORM: TAPE
     Route: 062
  28. PREDNISOLONE [Concomitant]
     Dosage: STOP DATE: 2010
     Route: 048
  29. PROGRAF [Concomitant]
     Dosage: DRUG: PROGRAF(TACROLIMUS HYDRATE)
     Route: 048
  30. ACTEMRA [Suspect]
     Indication: RHEUMATOID ARTHRITIS
     Route: 041
     Dates: start: 20090516, end: 20090516
  31. ACTEMRA [Suspect]
     Route: 041
     Dates: start: 20090610, end: 20090610
  32. LOCOID [Concomitant]
     Dosage: DOSAGE IS UNCERTAIN. FORM: OINTMENT AND CREAM
     Route: 003
  33. FELBINAC [Concomitant]
     Dosage: AT THE RIGHT TIME
     Route: 062

REACTIONS (9)
  - RHEUMATOID ARTHRITIS [None]
  - LARGE INTESTINE PERFORATION [None]
  - DIVERTICULITIS [None]
  - ANAEMIA [None]
  - INFECTIOUS PERITONITIS [None]
  - C-REACTIVE PROTEIN INCREASED [None]
  - COLONIC OBSTRUCTION [None]
  - LARGE INTESTINAL ULCER [None]
  - SMALL INTESTINE ULCER [None]
